FAERS Safety Report 16900876 (Version 1)
Quarter: 2019Q4

REPORT INFORMATION
  Report Type: Spontaneous
  Country: US (occurrence: US)
  Receive Date: 20191009
  Receipt Date: 20191009
  Transmission Date: 20200122
  Serious: Yes (Other)
  Sender: FDA-Public Use
  Company Number: US-SHIRE-US201932588

PATIENT
  Age: 67 Year
  Sex: Male
  Weight: 95.24 kg

DRUGS (1)
  1. XIIDRA [Suspect]
     Active Substance: LIFITEGRAST
     Indication: DRY EYE
     Dosage: 01 GTT, 2X/DAY:BID
     Route: 047
     Dates: start: 20190923

REACTIONS (3)
  - Hypoacusis [Unknown]
  - Product packaging quantity issue [Unknown]
  - Oculogyric crisis [Recovered/Resolved]

NARRATIVE: CASE EVENT DATE: 20190930
